FAERS Safety Report 7031954-5 (Version None)
Quarter: 2010Q4

REPORT INFORMATION
  Report Type: 
  Country: None (occurrence: None)
  Receive Date: 20101001
  Receipt Date: 20100920
  Transmission Date: 20110411
  Serious: Yes (Death)
  Sender: FDA-Public Use
  Company Number: DSJ-2010-17370

PATIENT
  Age: 48 Year
  Sex: Female

DRUGS (1)
  1. BENICAR [Suspect]
     Indication: HYPERTENSION
     Dosage: 40 MG (40 MG, 1 IN A D), PER ORAL
     Route: 048
     Dates: start: 20100701, end: 20100917

REACTIONS (1)
  - DEATH [None]
